FAERS Safety Report 9775152 (Version 4)
Quarter: 2014Q3

REPORT INFORMATION
  Report Type: Spontaneous
  Country: US (occurrence: US)
  Receive Date: 20131220
  Receipt Date: 20140926
  Transmission Date: 20150326
  Serious: Yes (Life-Threatening, Hospitalization, Other)
  Sender: FDA-Public Use
  Company Number: US-BAYER-2013-154014

PATIENT
  Age: 21 Year
  Sex: Female
  Weight: 54.42 kg

DRUGS (12)
  1. LEXAPRO [Concomitant]
     Active Substance: ESCITALOPRAM OXALATE
     Indication: DEPRESSION
     Dosage: 20 MG, UNK
     Route: 048
     Dates: start: 2004, end: 2010
  2. ACYCLOVIR ALPHARMA [ACICLOVIR SODIUM] [Concomitant]
     Dosage: 400 MG, UNK
     Route: 048
  3. AZITHROMYCIN [Concomitant]
     Active Substance: AZITHROMYCIN ANHYDROUS
     Dosage: 250 MG, UNK
     Route: 048
  4. CELEXA [Concomitant]
     Active Substance: CITALOPRAM HYDROBROMIDE
     Indication: DEPRESSION
     Dosage: 20 MG, UNK
     Route: 048
     Dates: start: 2004, end: 2010
  5. ALBUTEROL. [Concomitant]
     Active Substance: ALBUTEROL
     Indication: ASTHMA
     Dosage: UNK
     Dates: start: 2004, end: 2010
  6. CEFPROZIL. [Concomitant]
     Active Substance: CEFPROZIL
     Dosage: 250 MG, UNK
     Route: 048
  7. KEFLEX [Concomitant]
     Active Substance: CEPHALEXIN
     Dosage: 500 MG, UNK
     Route: 048
  8. ADVAIR DISKUS [Concomitant]
     Active Substance: FLUTICASONE PROPIONATE\SALMETEROL XINAFOATE
     Indication: ASTHMA
     Dosage: 250 /50 MCG, INHALER
     Dates: start: 2004, end: 2010
  9. HYCODAN [HOMATROPINE METHYLBROMIDE,HYDROCODONE BITARTRATE] [Concomitant]
     Dosage: 5-1.5 /5 ML, SYRUP
     Route: 048
  10. MUCINEX [Concomitant]
     Active Substance: GUAIFENESIN
     Dosage: 120 -1200 MG
     Route: 048
  11. MIRENA [Suspect]
     Active Substance: LEVONORGESTREL
     Dosage: 20 MCG/24HR, CONT
     Route: 015
     Dates: start: 20091125, end: 20101207
  12. PREDNISONE. [Concomitant]
     Active Substance: PREDNISONE
     Dosage: 50 MG, QUANTITY 3
     Route: 048

REACTIONS (22)
  - Anxiety [None]
  - Device dislocation [None]
  - Uterine perforation [None]
  - Anhedonia [None]
  - Back pain [None]
  - Coital bleeding [None]
  - Atrophy [None]
  - Pregnancy with contraceptive device [None]
  - Abdominal pain [None]
  - Genital haemorrhage [None]
  - Injury [None]
  - Drug ineffective [None]
  - Placenta praevia [Recovered/Resolved]
  - Pelvic pain [None]
  - Dyspareunia [None]
  - Complication of pregnancy [None]
  - Device issue [None]
  - Device difficult to use [None]
  - General physical health deterioration [None]
  - Musculoskeletal chest pain [None]
  - Uterine scar [None]
  - Libido decreased [None]

NARRATIVE: CASE EVENT DATE: 201011
